FAERS Safety Report 10696618 (Version 3)
Quarter: 2015Q1

REPORT INFORMATION
  Report Type: Report from Study
  Country: US (occurrence: US)
  Receive Date: 20150107
  Receipt Date: 20150304
  Transmission Date: 20150721
  Serious: Yes (Hospitalization, Other)
  Sender: FDA-Public Use
  Company Number: US-AMGEN-USASP2011041473

PATIENT
  Age: 43 Year
  Sex: Female

DRUGS (2)
  1. ENBREL [Suspect]
     Active Substance: ETANERCEPT
     Indication: RHEUMATOID ARTHRITIS
     Dosage: 50 MG, QWK
     Route: 065
  2. METHOTREXATE [Concomitant]
     Active Substance: METHOTREXATE
     Dosage: UNK

REACTIONS (11)
  - Red blood cell sedimentation rate increased [Unknown]
  - Fatigue [Recovered/Resolved]
  - Joint fluid drainage [Recovered/Resolved]
  - Joint warmth [Recovered/Resolved]
  - Arthralgia [Not Recovered/Not Resolved]
  - Abdominal pain upper [Recovered/Resolved]
  - Rheumatoid arthritis [Recovered/Resolved]
  - Joint dislocation [Not Recovered/Not Resolved]
  - Herpes zoster [Recovering/Resolving]
  - Joint swelling [Not Recovered/Not Resolved]
  - Wrist surgery [Recovered/Resolved]

NARRATIVE: CASE EVENT DATE: 201105
